FAERS Safety Report 16228881 (Version 2)
Quarter: 2019Q2

REPORT INFORMATION
  Report Type: Report from Study
  Country: JP (occurrence: JP)
  Receive Date: 20190423
  Receipt Date: 20190423
  Transmission Date: 20190711
  Serious: Yes (Death, Life-Threatening)
  Sender: FDA-Public Use
  Company Number: JP-PFIZER INC-2019168807

PATIENT
  Sex: Male

DRUGS (5)
  1. PACLITAXEL. [Suspect]
     Active Substance: PACLITAXEL
     Indication: SMALL CELL LUNG CANCER
     Dosage: 80 MG/M2, WEEKLY (EACH WEEK FOR 6 CONSECUTIVE WEEKS FOLLOWED BY A 2-WEEK BREAK)
     Route: 042
  2. DIPHENHYDRAMINE. [Concomitant]
     Active Substance: DIPHENHYDRAMINE
     Indication: PREMEDICATION
     Dosage: 50 MG, UNK (30 MIN PRIOR TO PACLITAXEL)
     Route: 042
  3. DEXAMETHASONE. [Concomitant]
     Active Substance: DEXAMETHASONE
     Indication: PREMEDICATION
     Dosage: 20 MG, UNK (30 MIN PRIOR TO PACLITAXEL)
     Route: 042
  4. RANITIDINE. [Concomitant]
     Active Substance: RANITIDINE
     Indication: PREMEDICATION
     Dosage: 50 MG, UNK (30 MIN PRIOR TO PACLITAXEL)
     Route: 042
  5. PACLITAXEL. [Suspect]
     Active Substance: PACLITAXEL
     Dosage: 10 MG/M2, WEEKLY (IN SUBSEQUENT CYCLES WAS REDUCED BY 10 MG/M2 FROM PLANNEDD DOSE)
     Route: 042

REACTIONS (5)
  - Infection [Fatal]
  - Pneumonia [Fatal]
  - Febrile neutropenia [Fatal]
  - Dyspnoea [Fatal]
  - Respiratory failure [Fatal]
